FAERS Safety Report 7000213-9 (Version None)
Quarter: 2010Q3

REPORT INFORMATION
  Report Type: 
  Country: None (occurrence: None)
  Receive Date: 20100920
  Receipt Date: 20100909
  Transmission Date: 20110219
  Serious: Yes (Congenital Anomaly)
  Sender: FDA-Public Use
  Company Number: FR-JNJFOC-20100903775

PATIENT
  Sex: Female

DRUGS (5)
  1. PREZISTA [Suspect]
     Indication: DRUG EXPOSURE DURING PREGNANCY
     Route: 064
  2. DEPAKENE [Suspect]
     Indication: DRUG EXPOSURE DURING PREGNANCY
     Route: 064
  3. RIVOTRIL [Concomitant]
     Route: 064
  4. TRUVADA [Concomitant]
     Route: 064
  5. NORVIR [Concomitant]
     Route: 064

REACTIONS (2)
  - HEART DISEASE CONGENITAL [None]
  - INTRAVENTRICULAR HAEMORRHAGE [None]
